FAERS Safety Report 20891453 (Version 3)
Quarter: 2022Q2

REPORT INFORMATION
  Report Type: Report from Study
  Country: US (occurrence: US)
  Receive Date: 20220530
  Receipt Date: 20220621
  Transmission Date: 20220721
  Serious: No
  Sender: FDA-Public Use
  Company Number: US-BIOVITRUM-2022US05846

PATIENT
  Age: 57 Year
  Sex: Male

DRUGS (2)
  1. KINERET [Suspect]
     Active Substance: ANAKINRA
     Indication: Polyarthritis
     Route: 058
     Dates: start: 20220429
  2. KINERET [Suspect]
     Active Substance: ANAKINRA
     Route: 058
     Dates: start: 20220506

REACTIONS (14)
  - Dyspnoea [Not Recovered/Not Resolved]
  - Arthritis [Unknown]
  - Influenza [Unknown]
  - Nausea [Unknown]
  - Malaise [Unknown]
  - Respiration abnormal [Unknown]
  - Chronic obstructive pulmonary disease [Unknown]
  - Injection site pain [Unknown]
  - Injection site pruritus [Unknown]
  - Injection site erythema [Unknown]
  - Injection site urticaria [Unknown]
  - Injection site mass [Unknown]
  - Product dose omission issue [Unknown]
  - Off label use [Unknown]

NARRATIVE: CASE EVENT DATE: 20220429
